FAERS Safety Report 23918993 (Version 1)
Quarter: 2024Q2

REPORT INFORMATION
  Report Type: Report from Study
  Country: CA (occurrence: CA)
  Receive Date: 20240530
  Receipt Date: 20240530
  Transmission Date: 20240716
  Serious: Yes (Hospitalization, Other)
  Sender: FDA-Public Use
  Company Number: CA-JNJFOC-20231029404

PATIENT
  Age: 36 Year
  Sex: Female
  Weight: 132 kg

DRUGS (2)
  1. REMICADE [Suspect]
     Active Substance: INFLIXIMAB
     Indication: Crohn^s disease
     Route: 041
  2. REMICADE [Suspect]
     Active Substance: INFLIXIMAB
     Route: 041
     Dates: start: 20180625

REACTIONS (9)
  - Abdominal pain [Recovered/Resolved]
  - Intestinal resection [Recovered/Resolved]
  - Small intestinal obstruction [Not Recovered/Not Resolved]
  - Decreased appetite [Recovered/Resolved]
  - Scar [Recovered/Resolved]
  - Mucous stools [Recovered/Resolved]
  - Frequent bowel movements [Recovered/Resolved]
  - Pruritus [Recovered/Resolved]
  - Adverse event [Unknown]

NARRATIVE: CASE EVENT DATE: 20231004
